FAERS Safety Report 9921864 (Version 1)
Quarter: 2014Q1

REPORT INFORMATION
  Report Type: Spontaneous
  Country: FR (occurrence: FR)
  Receive Date: 20140225
  Receipt Date: 20140225
  Transmission Date: 20141002
  Serious: Yes (Other)
  Sender: FDA-Public Use
  Company Number: FR-BRISTOL-MYERS SQUIBB COMPANY-20241923

PATIENT
  Age: 80 Year
  Sex: Female

DRUGS (10)
  1. ORENCIA FOR INJ [Suspect]
     Indication: RHEUMATOID ARTHRITIS
     Route: 042
     Dates: start: 20111215
  2. ZANIDIP [Concomitant]
  3. COAPROVEL [Concomitant]
  4. NOVOMIX [Concomitant]
  5. INSULATARD [Concomitant]
  6. PRAVASTATINE [Concomitant]
  7. OROCAL [Concomitant]
  8. LYRICA [Concomitant]
  9. DAFALGAN [Concomitant]
  10. MOVICOL [Concomitant]

REACTIONS (1)
  - Psoriasis [Not Recovered/Not Resolved]
